FAERS Safety Report 12219378 (Version 1)
Quarter: 2016Q1

REPORT INFORMATION
  Report Type: Spontaneous
  Country: FR (occurrence: FR)
  Receive Date: 20160329
  Receipt Date: 20160329
  Transmission Date: 20160526
  Serious: Yes (Other)
  Sender: FDA-Public Use
  Company Number: FR-ABBVIE-16P-056-1594082-00

PATIENT
  Age: 2 Year
  Sex: Male

DRUGS (1)
  1. VALPROATE SODIUM. [Suspect]
     Active Substance: VALPROATE SODIUM
     Indication: FEBRILE CONVULSION
     Route: 048
     Dates: start: 2013

REACTIONS (1)
  - Anal incontinence [Not Recovered/Not Resolved]

NARRATIVE: CASE EVENT DATE: 2013
